FAERS Safety Report 17152417 (Version 4)
Quarter: 2020Q1

REPORT INFORMATION
  Report Type: Report from Study
  Country: US (occurrence: US)
  Receive Date: 20191213
  Receipt Date: 20200309
  Transmission Date: 20200409
  Serious: Yes (Hospitalization)
  Sender: FDA-Public Use
  Company Number: US-ACTELION-A-NJ2019-197812

PATIENT
  Sex: Male
  Weight: 71.66 kg

DRUGS (10)
  1. OPSUMIT [Suspect]
     Active Substance: MACITENTAN
     Indication: PULMONARY ARTERIAL HYPERTENSION
     Dosage: 10 MG, QD
     Route: 048
     Dates: start: 2019
  2. SILDENAFIL. [Concomitant]
     Active Substance: SILDENAFIL
     Dosage: 20 MG, TID
     Dates: start: 2019
  3. OXYMETAZOLINE [Concomitant]
     Active Substance: OXYMETAZOLINE
  4. ELIQUIS [Concomitant]
     Active Substance: APIXABAN
     Dosage: 5 MG, BID
     Dates: start: 201912
  5. BUSPAR [Concomitant]
     Active Substance: BUSPIRONE HYDROCHLORIDE
     Dosage: 10 MG, TID
     Dates: start: 201805
  6. OXYGEN. [Concomitant]
     Active Substance: OXYGEN
  7. METOPROLOL. [Concomitant]
     Active Substance: METOPROLOL
     Dosage: 50 MG, BID
     Dates: start: 200811
  8. LASIX [Concomitant]
     Active Substance: FUROSEMIDE
     Dosage: 20 MG, QD
     Dates: start: 201912
  9. OPSUMIT [Suspect]
     Active Substance: MACITENTAN
     Dosage: UNK
     Route: 048
     Dates: start: 20200208
  10. ISOSORBIDE. [Suspect]
     Active Substance: ISOSORBIDE
     Indication: ANGINA PECTORIS
     Dosage: 60 MG
     Route: 065
     Dates: start: 200801

REACTIONS (9)
  - Fatigue [Recovering/Resolving]
  - Atrial fibrillation [Recovering/Resolving]
  - Headache [Unknown]
  - Hospitalisation [Recovering/Resolving]
  - Dyspnoea [Unknown]
  - Nasal congestion [Unknown]
  - Unevaluable event [Unknown]
  - Fluid retention [Unknown]
  - Fluid overload [Recovering/Resolving]
